FAERS Safety Report 22669959 (Version 6)
Quarter: 2024Q3

REPORT INFORMATION
  Report Type: Report from Study
  Country: US (occurrence: US)
  Receive Date: 20230704
  Receipt Date: 20240904
  Transmission Date: 20241016
  Serious: Yes (Hospitalization)
  Sender: ABBVIE
  Company Number: US-ABBVIE-5313198

PATIENT
  Age: 38 Year
  Sex: Male

DRUGS (5)
  1. SKYRIZI [Suspect]
     Active Substance: RISANKIZUMAB-RZAA
     Indication: Crohn^s disease
     Dosage: FORM STRENGTH: 360MG/2.4 ML
     Route: 058
     Dates: start: 20230203
  2. SKYRIZI [Suspect]
     Active Substance: RISANKIZUMAB-RZAA
     Route: 058
     Dates: start: 202210
  3. SKYRIZI [Suspect]
     Active Substance: RISANKIZUMAB-RZAA
     Indication: Crohn^s disease
     Dosage: 600 MG/ 10ML AT WEEK 4?FORM STRENGTH: 600 MG
     Route: 042
  4. SKYRIZI [Suspect]
     Active Substance: RISANKIZUMAB-RZAA
     Indication: Crohn^s disease
     Dosage: 600 MG/ 10ML AT WEEK 0?FORM STRENGTH: 600 MG
     Route: 042
     Dates: start: 202210, end: 202210
  5. SKYRIZI [Suspect]
     Active Substance: RISANKIZUMAB-RZAA
     Indication: Crohn^s disease
     Dosage: 600 MG/ 10ML AT WEEK 8?FORM STRENGTH: 600 MG
     Route: 042

REACTIONS (8)
  - Appendicectomy [Not Recovered/Not Resolved]
  - Arthralgia [Not Recovered/Not Resolved]
  - Injection site swelling [Not Recovered/Not Resolved]
  - Ileostomy [Unknown]
  - Colectomy [Recovering/Resolving]
  - Injection site urticaria [Not Recovered/Not Resolved]
  - Impaired healing [Not Recovered/Not Resolved]
  - Injection site erythema [Not Recovered/Not Resolved]

NARRATIVE: CASE EVENT DATE: 20230627
